FAERS Safety Report 5551382-9 (Version None)
Quarter: 2007Q4

REPORT INFORMATION
  Report Type: 
  Country: None (occurrence: None)
  Receive Date: 20071212
  Receipt Date: 20071129
  Transmission Date: 20080405
  Serious: Yes (Disabling)
  Sender: FDA-Public Use
  Company Number: FR-AMGEN-US254684

PATIENT
  Sex: Male
  Weight: 70 kg

DRUGS (3)
  1. ENBREL [Suspect]
     Indication: PSORIATIC ARTHROPATHY
     Route: 058
     Dates: start: 20070123, end: 20071119
  2. INEXIUM [Concomitant]
     Route: 048
     Dates: start: 20060101
  3. BUTAZOLIDIN [Concomitant]
     Dosage: 3 TABLETS TOTAL DAILY
     Route: 048
     Dates: start: 20050101

REACTIONS (1)
  - SKIN PAPILLOMA [None]
